FAERS Safety Report 25631566 (Version 3)
Quarter: 2025Q3

REPORT INFORMATION
  Report Type: Spontaneous
  Country: US (occurrence: US)
  Receive Date: 20250801
  Receipt Date: 20250821
  Transmission Date: 20251021
  Serious: No
  Sender: GILEAD
  Company Number: US-GILEAD-2025-0722904

PATIENT
  Age: 52 Year
  Sex: Male
  Weight: 144.67 kg

DRUGS (2)
  1. YEZTUGO [Suspect]
     Active Substance: LENACAPAVIR SODIUM
     Indication: Exposure to communicable disease
     Route: 065
     Dates: start: 20250730, end: 20250730
  2. YEZTUGO [Suspect]
     Active Substance: LENACAPAVIR SODIUM
     Indication: Exposure to communicable disease
     Route: 065
     Dates: start: 20250730, end: 20250731

REACTIONS (2)
  - Injection site discharge [Recovered/Resolved]
  - Product use in unapproved indication [Not Recovered/Not Resolved]

NARRATIVE: CASE EVENT DATE: 20250730
